FAERS Safety Report 15374564 (Version 1)
Quarter: 2018Q3

REPORT INFORMATION
  Report Type: Spontaneous
  Country: US (occurrence: US)
  Receive Date: 20180905
  Receipt Date: 20180905
  Transmission Date: 20181010
  Serious: No
  Sender: FDA-Public Use
  Company Number: None

PATIENT
  Age: 3 Year
  Sex: Female
  Weight: 15.75 kg

DRUGS (2)
  1. KIDS MULTIVITAMIN [Concomitant]
  2. EUCRISA [Suspect]
     Active Substance: CRISABOROLE
     Indication: ECZEMA
     Dosage: ?          QUANTITY:1 INJECTION(S);?
     Route: 061
     Dates: start: 20180802, end: 20180803

REACTIONS (3)
  - Urticaria [None]
  - Application site pain [None]
  - Chemical burn of skin [None]

NARRATIVE: CASE EVENT DATE: 20180803
